FAERS Safety Report 18278660 (Version 19)
Quarter: 2025Q2

REPORT INFORMATION
  Report Type: Report from Study
  Country: US (occurrence: US)
  Receive Date: 20200917
  Receipt Date: 20250421
  Transmission Date: 20250717
  Serious: Yes (Hospitalization, Other)
  Sender: TAKEDA
  Company Number: US-SHIRE-US202030199

PATIENT
  Sex: Female
  Weight: 87 kg

DRUGS (30)
  1. HUMAN IMMUNOGLOBULIN G [Suspect]
     Active Substance: HUMAN IMMUNOGLOBULIN G
     Indication: Immunodeficiency common variable
     Dosage: 8 GRAM, 1/WEEK
     Dates: start: 20171101
  2. HUMAN IMMUNOGLOBULIN G [Suspect]
     Active Substance: HUMAN IMMUNOGLOBULIN G
     Dosage: 16 GRAM, Q2WEEKS
  3. HUMAN IMMUNOGLOBULIN G [Suspect]
     Active Substance: HUMAN IMMUNOGLOBULIN G
     Dosage: 16 GRAM, Q2WEEKS
  4. INFLUENZA VIRUS VACCINE [Suspect]
     Active Substance: INFLUENZA VIRUS VACCINE
     Indication: Product used for unknown indication
  5. COVID-19 VACCINE NOS [Suspect]
     Active Substance: COVID-19 VACCINE
     Indication: Product used for unknown indication
  6. DOXYCYCLINE [Suspect]
     Active Substance: DOXYCYCLINE
     Indication: Product used for unknown indication
     Dosage: 100 MILLIGRAM, BID
  7. ACETAMINOPHEN [Concomitant]
     Active Substance: ACETAMINOPHEN
  8. COLACE [Concomitant]
     Active Substance: DOCUSATE SODIUM
  9. LIDODERM [Concomitant]
     Active Substance: LIDOCAINE
  10. CVS coenzyme q 10 [Concomitant]
  11. DEPAKOTE [Concomitant]
     Active Substance: DIVALPROEX SODIUM
  12. ACETAMINOPHEN\HYDROCODONE [Concomitant]
     Active Substance: ACETAMINOPHEN\HYDROCODONE
  13. ZOCOR [Concomitant]
     Active Substance: SIMVASTATIN
  14. LOSARTAN POTASSIUM [Concomitant]
     Active Substance: LOSARTAN POTASSIUM
  15. KEPPRA [Concomitant]
     Active Substance: LEVETIRACETAM
  16. VITAMIN C [Concomitant]
     Active Substance: ASCORBIC ACID
  17. VITAMIN D3 [Concomitant]
     Active Substance: CHOLECALCIFEROL
  18. ASPIRIN [Concomitant]
     Active Substance: ASPIRIN
  19. HYDROCHLOROTHIAZIDE [Concomitant]
     Active Substance: HYDROCHLOROTHIAZIDE
  20. LIDOCAINE [Concomitant]
     Active Substance: LIDOCAINE
  21. CEPHALEXIN [Concomitant]
     Active Substance: CEPHALEXIN
  22. Lmx [Concomitant]
  23. SYNTHROID [Concomitant]
     Active Substance: LEVOTHYROXINE SODIUM
  24. DIPHENHYDRAMINE HYDROCHLORIDE [Concomitant]
     Active Substance: DIPHENHYDRAMINE HYDROCHLORIDE
  25. DIPHENHYDRAMINE [Concomitant]
     Active Substance: DIPHENHYDRAMINE
  26. REFRESH OPTIVE [Concomitant]
     Active Substance: CARBOXYMETHYLCELLULOSE SODIUM\GLYCERIN
  27. EPINEPHRINE [Concomitant]
     Active Substance: EPINEPHRINE
  28. HYDROCODONE [Concomitant]
     Active Substance: HYDROCODONE
  29. Zocort [Concomitant]
  30. DOXYCYCLINE HYCLATE [Concomitant]
     Active Substance: DOXYCYCLINE HYCLATE

REACTIONS (21)
  - Cataract [Unknown]
  - Pneumonia [Unknown]
  - Wound infection staphylococcal [Not Recovered/Not Resolved]
  - Clostridium difficile colitis [Unknown]
  - Vulval abscess [Unknown]
  - Cardiac arrest [Unknown]
  - Hordeolum [Unknown]
  - Tooth infection [Unknown]
  - COVID-19 [Unknown]
  - Cystitis [Unknown]
  - Drug hypersensitivity [Unknown]
  - Hypertonic bladder [Unknown]
  - Vaccination site swelling [Unknown]
  - Vaccination site pain [Unknown]
  - Inappropriate schedule of product administration [Unknown]
  - Off label use [Unknown]
  - Acne [Unknown]
  - Infusion site mass [Unknown]
  - Oropharyngeal pain [Unknown]
  - Muscle spasms [Not Recovered/Not Resolved]
  - Pruritus [Unknown]
